FAERS Safety Report 8948578 (Version 2)
Quarter: 2012Q4

REPORT INFORMATION
  Report Type: 
  Country: US (occurrence: US)
  Receive Date: 20121121
  Receipt Date: 20121212
  Transmission Date: 20130627
  Serious: Yes (Death, Other)
  Sender: FDA-Public Use
  Company Number: US-ASTELLAS-1112679

PATIENT
  Sex: Male

DRUGS (13)
  1. TARCEVA [Suspect]
     Indication: NON-SMALL CELL LUNG CANCER
     Route: 065
     Dates: start: 200506, end: 200508
  2. ALUPENT [Concomitant]
  3. ASPIRIN [Concomitant]
     Route: 065
  4. ATROVENT [Concomitant]
  5. AZOPT [Concomitant]
     Dosage: 2 DROPS
     Route: 065
  6. CEPHALEXIN [Concomitant]
  7. CLEOCIN [Concomitant]
  8. DOXYCYCLIN [Concomitant]
     Route: 065
  9. FUROSEMIDE [Concomitant]
     Route: 065
  10. TRAVATAN [Concomitant]
     Dosage: 1 DROP BOTH EYES
     Route: 065
  11. TYLENOL [Concomitant]
     Route: 065
  12. LEVAQUIN [Concomitant]
  13. LASIX [Concomitant]

REACTIONS (7)
  - Death [Fatal]
  - Chronic obstructive pulmonary disease [Unknown]
  - Adenocarcinoma [Unknown]
  - Acne [Unknown]
  - Rash [Unknown]
  - Anxiety [Unknown]
  - Fatigue [Unknown]
